FAERS Safety Report 11851240 (Version 1)
Quarter: 2015Q4

REPORT INFORMATION
  Report Type: Spontaneous
  Country: US (occurrence: US)
  Receive Date: 20151218
  Receipt Date: 20151218
  Transmission Date: 20160305
  Serious: No
  Sender: FDA-Public Use
  Company Number: US-JNJFOC-20150718187

PATIENT
  Age: 61 Year
  Sex: Female
  Weight: 40.82 kg

DRUGS (3)
  1. VITAMIN D [Concomitant]
     Active Substance: CHOLECALCIFEROL
     Indication: PHOTOSENSITIVITY REACTION
     Dosage: 1000 IU/MORNING, 1 YEAR
     Route: 065
  2. WOMENS ROGAINE UNSCENTED [Suspect]
     Active Substance: MINOXIDIL
     Route: 061
  3. WOMENS ROGAINE UNSCENTED [Suspect]
     Active Substance: MINOXIDIL
     Indication: ALOPECIA
     Dosage: 1/2 CAP, STARTED USING ABOUT 8 MONTHS AGO
     Route: 061

REACTIONS (1)
  - Alopecia [Recovered/Resolved]
